FAERS Safety Report 25879274 (Version 2)
Quarter: 2025Q4

REPORT INFORMATION
  Report Type: Spontaneous
  Country: US (occurrence: US)
  Receive Date: 20251003
  Receipt Date: 20251010
  Transmission Date: 20260117
  Serious: Yes (Other)
  Sender: BRISTOL-MYERS SQUIBB COMPANY
  Company Number: US-BRISTOL-MYERS SQUIBB COMPANY-2025-135070

PATIENT
  Age: 76 Year
  Sex: Female
  Weight: 101.15 kg

DRUGS (1)
  1. REVLIMID [Suspect]
     Active Substance: LENALIDOMIDE
     Indication: Myelodysplastic syndrome with excess blasts
     Dosage: 2 WEEKS ON, 2 OFF?DAILY FOR 14 DAYS AND 14 DAYS OFF

REACTIONS (2)
  - Renal impairment [Not Recovered/Not Resolved]
  - Anaemia [Not Recovered/Not Resolved]
